FAERS Safety Report 22662014 (Version 1)
Quarter: 2023Q2

REPORT INFORMATION
  Report Type: Spontaneous
  Country: US (occurrence: US)
  Receive Date: 20230630
  Receipt Date: 20230630
  Transmission Date: 20230722
  Serious: Yes (Other)
  Sender: FDA-Public Use
  Company Number: US-BEH-2023160468

PATIENT
  Sex: Female

DRUGS (1)
  1. HIZENTRA [Suspect]
     Active Substance: HUMAN IMMUNOGLOBULIN G
     Indication: Product used for unknown indication
     Dosage: 12 GRAM, QW
     Route: 065
     Dates: start: 2009

REACTIONS (6)
  - Chondritis [Unknown]
  - Bursa disorder [Unknown]
  - Arthritis [Unknown]
  - Colitis [Unknown]
  - Precancerous lesion of digestive tract [Unknown]
  - Joint swelling [Unknown]

NARRATIVE: CASE EVENT DATE: 20090101
